FAERS Safety Report 4416429-1 (Version None)
Quarter: 2004Q3

REPORT INFORMATION
  Report Type: 
  Country: None (occurrence: None)
  Receive Date: 20040802
  Receipt Date: 20040726
  Transmission Date: 20050211
  Serious: Yes (Hospitalization, Other)
  Sender: FDA-Public Use
  Company Number: 2004217580FR

PATIENT
  Age: 32 Year
  Sex: Female
  Weight: 64 kg

DRUGS (3)
  1. ZYVOX [Suspect]
     Indication: NOCARDIOSIS
     Dosage: 600 MG, BID , ORAL
     Route: 048
     Dates: start: 20040119, end: 20040615
  2. NEURONTIN [Concomitant]
  3. TRILEPTAL [Concomitant]

REACTIONS (2)
  - HAEMOLYTIC ANAEMIA [None]
  - NEUROPATHY PERIPHERAL [None]
